FAERS Safety Report 4851032-0 (Version None)
Quarter: 2005Q4

REPORT INFORMATION
  Report Type: 
  Country: None (occurrence: None)
  Receive Date: 20051212
  Receipt Date: 20050930
  Transmission Date: 20060501
  Serious: Yes (Hospitalization, Other)
  Sender: FDA-Public Use
  Company Number: US-MERCK-0510USA01937

PATIENT
  Age: 45 Year
  Sex: Male
  Weight: 136 kg

DRUGS (10)
  1. VIOXX [Suspect]
     Indication: ARTHRALGIA
     Route: 048
     Dates: start: 19990101, end: 20030101
  2. ACTOS [Concomitant]
     Route: 065
  3. CRESTOR [Concomitant]
     Route: 065
  4. XANAX [Concomitant]
     Route: 065
  5. XANAX [Concomitant]
     Route: 065
  6. XANAX [Concomitant]
     Route: 065
  7. ZOCOR [Concomitant]
     Route: 065
  8. WELLBUTRIN SR [Concomitant]
     Route: 065
  9. EFFEXOR [Concomitant]
     Route: 065
  10. COUMADIN [Concomitant]
     Route: 065

REACTIONS (18)
  - ANGINA UNSTABLE [None]
  - BACK PAIN [None]
  - CELLULITIS [None]
  - CYST [None]
  - DEEP VEIN THROMBOSIS [None]
  - DIABETES MELLITUS NON-INSULIN-DEPENDENT [None]
  - FATIGUE [None]
  - HAEMATOMA [None]
  - HAEMORRHOIDS [None]
  - HYPERSOMNIA [None]
  - KNEE OPERATION [None]
  - MYOCARDIAL INFARCTION [None]
  - PEPTIC ULCER [None]
  - PULMONARY EMBOLISM [None]
  - RESTRICTIVE PULMONARY DISEASE [None]
  - SLEEP APNOEA SYNDROME [None]
  - TENSION HEADACHE [None]
  - UPPER RESPIRATORY TRACT INFECTION [None]
